FAERS Safety Report 26086517 (Version 1)
Quarter: 2025Q4

REPORT INFORMATION
  Report Type: Spontaneous
  Country: TW (occurrence: TW)
  Receive Date: 20251125
  Receipt Date: 20251125
  Transmission Date: 20260117
  Serious: Yes (Death, Hospitalization)
  Sender: BOEHRINGER INGELHEIM
  Company Number: TW-BoehringerIngelheim-2025-BI-109591

PATIENT
  Age: 60 Year
  Sex: Female

DRUGS (4)
  1. OFEV [Suspect]
     Active Substance: NINTEDANIB
     Indication: Interstitial lung disease
  2. AZATHIOPRINE [Concomitant]
     Active Substance: AZATHIOPRINE
     Indication: Product used for unknown indication
  3. CYC [Concomitant]
     Indication: Product used for unknown indication
  4. OXYQUINOLINE [Concomitant]
     Active Substance: OXYQUINOLINE
     Indication: Product used for unknown indication

REACTIONS (4)
  - Infection [Fatal]
  - Cytomegalovirus infection [Fatal]
  - Sepsis [Fatal]
  - Gastrointestinal haemorrhage [Fatal]
